FAERS Safety Report 8024743-6 (Version None)
Quarter: 2012Q1

REPORT INFORMATION
  Report Type: 
  Country: None (occurrence: None)
  Receive Date: 20120105
  Receipt Date: 20111223
  Transmission Date: 20120608
  Serious: Yes (Hospitalization, Other)
  Sender: FDA-Public Use
  Company Number: KR-ACTELION-A-CH2011-58823

PATIENT
  Sex: Female
  Weight: 54 kg

DRUGS (2)
  1. TRACLEER [Suspect]
     Indication: PULMONARY ARTERIAL HYPERTENSION
     Dosage: 125 MG, QD
     Route: 048
     Dates: start: 20070412, end: 20070711
  2. TRACLEER [Suspect]
     Dosage: 250 MG, QD
     Route: 048
     Dates: start: 20070712

REACTIONS (2)
  - PREGNANCY [None]
  - ABORTION INDUCED [None]
